FAERS Safety Report 8396783-9 (Version None)
Quarter: 2012Q2

REPORT INFORMATION
  Report Type: 
  Country: None (occurrence: None)
  Receive Date: 20120530
  Receipt Date: 20120521
  Transmission Date: 20120825
  Serious: Yes (Hospitalization)
  Sender: FDA-Public Use
  Company Number: US-JNJFOC-20120518251

PATIENT
  Sex: Female
  Weight: 44.2 kg

DRUGS (11)
  1. REMICADE [Suspect]
     Indication: INFLAMMATORY BOWEL DISEASE
     Route: 042
     Dates: start: 20100716, end: 20101021
  2. PREDNISONE TAB [Concomitant]
  3. PREVACID [Concomitant]
  4. PEPTAMEN [Concomitant]
     Dosage: DRUG NAME ^PEPTAMEN 1.5^
  5. MULTI-VITAMINS [Concomitant]
  6. BUDESONIDE [Concomitant]
  7. MERCAPTOPURINE [Concomitant]
  8. ONDANSETRON [Concomitant]
  9. CALCIUM [Concomitant]
  10. TRAMADOL HCL [Concomitant]
  11. RANITIDINE [Concomitant]

REACTIONS (1)
  - SMALL INTESTINAL OBSTRUCTION [None]
